FAERS Safety Report 17369646 (Version 2)
Quarter: 2020Q1

REPORT INFORMATION
  Report Type: Spontaneous
  Country: US (occurrence: US)
  Receive Date: 20200204
  Receipt Date: 20200214
  Transmission Date: 20200409
  Serious: Yes (Hospitalization, Other)
  Sender: FDA-Public Use
  Company Number: US-ABBVIE-20K-163-3262316-00

PATIENT
  Age: 55 Year
  Sex: Female
  Weight: 71.28 kg

DRUGS (3)
  1. LEVOTHYROXINE. [Concomitant]
     Active Substance: LEVOTHYROXINE
     Indication: THYROID DISORDER
  2. LUPRON [Suspect]
     Active Substance: LEUPROLIDE ACETATE
     Indication: HAEMORRHAGE
     Route: 030
     Dates: start: 201901
  3. LOSARTAN. [Concomitant]
     Active Substance: LOSARTAN
     Indication: BLOOD PRESSURE MEASUREMENT

REACTIONS (4)
  - Vaginal haemorrhage [Not Recovered/Not Resolved]
  - Uterine leiomyoma [Recovered/Resolved]
  - Drug ineffective [Unknown]
  - Haemoglobin abnormal [Unknown]

NARRATIVE: CASE EVENT DATE: 201902
